FAERS Safety Report 7367000-3 (Version None)
Quarter: 2011Q1

REPORT INFORMATION
  Report Type: 
  Country: None (occurrence: None)
  Receive Date: 20110322
  Receipt Date: 20110315
  Transmission Date: 20110831
  Serious: No
  Sender: FDA-Public Use
  Company Number: US-PFIZER INC-2011022746

PATIENT
  Sex: Male
  Weight: 68 kg

DRUGS (3)
  1. NITROSTAT [Suspect]
     Indication: ANGINA PECTORIS
     Dosage: 0.4 MG, AS NEEDED
     Route: 060
     Dates: start: 19950101
  2. NITROSTAT [Suspect]
     Indication: CHEST PAIN
  3. WARFARIN [Concomitant]
     Dosage: UNK

REACTIONS (2)
  - PRODUCT TASTE ABNORMAL [None]
  - DRUG INEFFECTIVE [None]
